FAERS Safety Report 13749314 (Version 1)
Quarter: 2017Q3

REPORT INFORMATION
  Report Type: Spontaneous
  Country: JP (occurrence: JP)
  Receive Date: 20170713
  Receipt Date: 20170713
  Transmission Date: 20171127
  Serious: Yes (Other)
  Sender: FDA-Public Use
  Company Number: JP-GLAXOSMITHKLINE-JP2017JPN104711

PATIENT
  Sex: Female

DRUGS (1)
  1. LAMICTAL [Suspect]
     Active Substance: LAMOTRIGINE
     Indication: BIPOLAR I DISORDER
     Dosage: UNK
     Route: 048

REACTIONS (5)
  - Abdominal discomfort [Not Recovered/Not Resolved]
  - Haemorrhage subcutaneous [Unknown]
  - Dyspepsia [Unknown]
  - Eructation [Unknown]
  - Stomatitis [Unknown]

NARRATIVE: CASE EVENT DATE: 2017
